FAERS Safety Report 7146399-7 (Version None)
Quarter: 2010Q4

REPORT INFORMATION
  Report Type: 
  Country: None (occurrence: None)
  Receive Date: 20101208
  Receipt Date: 20100507
  Transmission Date: 20110411
  Serious: No
  Sender: FDA-Public Use
  Company Number: US-BRISTOL-MYERS SQUIBB COMPANY-15095821

PATIENT
  Age: 66 Year
  Sex: Female
  Weight: 86 kg

DRUGS (4)
  1. PRAVASTATIN SODIUM [Suspect]
     Indication: CARDIAC DISORDER
     Dates: start: 20090701
  2. ATENOLOL [Concomitant]
  3. ALLEGRA [Concomitant]
  4. LEVAQUIN [Concomitant]
     Indication: LUNG INFECTION

REACTIONS (1)
  - PAIN [None]
